FAERS Safety Report 4801290-3 (Version None)
Quarter: 2005Q4

REPORT INFORMATION
  Report Type: 
  Country: None (occurrence: None)
  Receive Date: 20051017
  Receipt Date: 20050323
  Transmission Date: 20060501
  Serious: Yes (Hospitalization, Disabling, Other)
  Sender: FDA-Public Use
  Company Number: US-MERCK-0503USA04139

PATIENT
  Age: 71 Year
  Sex: Female
  Weight: 50 kg

DRUGS (3)
  1. VIOXX [Suspect]
     Indication: ARTHRITIS
     Route: 048
     Dates: start: 20020201, end: 20040101
  2. VIOXX [Suspect]
     Route: 048
     Dates: start: 20040804, end: 20040801
  3. VIOXX [Suspect]
     Route: 048
     Dates: start: 20040101, end: 20040801

REACTIONS (48)
  - ABDOMINAL PAIN [None]
  - ABDOMINAL PAIN UPPER [None]
  - AORTIC ARTERIOSCLEROSIS [None]
  - ARTERIOSCLEROSIS [None]
  - ASTHENIA [None]
  - BILIARY TRACT DISORDER [None]
  - BLOOD GLUCOSE INCREASED [None]
  - CAROTID ARTERY STENOSIS [None]
  - CEREBROVASCULAR ACCIDENT [None]
  - CHANGE OF BOWEL HABIT [None]
  - COLONIC POLYP [None]
  - CONTUSION [None]
  - COUGH [None]
  - DEHYDRATION [None]
  - DEMENTIA ALZHEIMER'S TYPE [None]
  - DEPRESSION [None]
  - DIARRHOEA HAEMORRHAGIC [None]
  - DIZZINESS [None]
  - DYSPEPSIA [None]
  - FALL [None]
  - HEADACHE [None]
  - HEPATIC ENZYME INCREASED [None]
  - HIATUS HERNIA [None]
  - HYPERTENSION [None]
  - HYPOKALAEMIA [None]
  - HYPONATRAEMIA [None]
  - INNER EAR DISORDER [None]
  - IRON DEFICIENCY ANAEMIA [None]
  - LACUNAR INFARCTION [None]
  - LEUKOCYTOSIS [None]
  - LIVER FUNCTION TEST ABNORMAL [None]
  - MALIGNANT HYPERTENSION [None]
  - MITRAL VALVE INCOMPETENCE [None]
  - MYOCARDIAL INFARCTION [None]
  - NAUSEA [None]
  - OCCULT BLOOD POSITIVE [None]
  - PANCREATITIS [None]
  - PLEURAL EFFUSION [None]
  - POLYTRAUMATISM [None]
  - POST PROCEDURAL NAUSEA [None]
  - POST PROCEDURAL VOMITING [None]
  - SYNCOPE [None]
  - SYSTOLIC HYPERTENSION [None]
  - TRANSIENT ISCHAEMIC ATTACK [None]
  - VENTRICULAR DYSFUNCTION [None]
  - VENTRICULAR TACHYCARDIA [None]
  - VOMITING [None]
  - WEIGHT DECREASED [None]
